FAERS Safety Report 6496296-5 (Version None)
Quarter: 2009Q4

REPORT INFORMATION
  Report Type: 
  Country: None (occurrence: None)
  Receive Date: 20091210
  Receipt Date: 20091125
  Transmission Date: 20100525
  Serious: Yes (Other)
  Sender: FDA-Public Use
  Company Number: 2009003625

PATIENT
  Age: 81 Year
  Sex: Female
  Weight: 45.7 kg

DRUGS (9)
  1. ERLOTINIB HYDROCHLORIDE [Suspect]
     Indication: LUNG ADENOCARCINOMA
     Dosage: (150 MG,QD),ORAL
     Route: 048
     Dates: start: 20080327, end: 20081226
  2. LEVOTHYROXINE SODIUM [Concomitant]
  3. ENALAPRIL MALEATE [Concomitant]
  4. NORVASC [Concomitant]
  5. BIOFERMIN        (BIOFERMIN) [Concomitant]
  6. DEPAS  (ETIZOLAM) [Concomitant]
  7. FAMOTIDINE [Concomitant]
  8. ZOLPIDEM TARTRATE [Concomitant]
  9. LOPERAMIDE HCL [Concomitant]

REACTIONS (4)
  - LUNG ADENOCARCINOMA [None]
  - MALIGNANT NEOPLASM PROGRESSION [None]
  - PULMONARY INFARCTION [None]
  - VISUAL ACUITY REDUCED [None]
